FAERS Safety Report 22970319 (Version 6)
Quarter: 2024Q4

REPORT INFORMATION
  Report Type: Report from Study
  Country: US (occurrence: US)
  Receive Date: 20230922
  Receipt Date: 20241206
  Transmission Date: 20250114
  Serious: Yes (Hospitalization)
  Sender: INSMED
  Company Number: US-INSMED, INC.-2023-03554-US

PATIENT
  Sex: Female

DRUGS (2)
  1. ARIKAYCE [Suspect]
     Active Substance: AMIKACIN
     Indication: Mycobacterial infection
     Dosage: 590 MILLIGRAM, QD
     Route: 055
     Dates: start: 20220215
  2. ARIKAYCE [Suspect]
     Active Substance: AMIKACIN
     Dosage: 590 MILLIGRAM, QD
     Route: 055
     Dates: start: 2024, end: 2024

REACTIONS (7)
  - Hospitalisation [Unknown]
  - Hospitalisation [Unknown]
  - Hospitalisation [Unknown]
  - Hospitalisation [Unknown]
  - Cystic fibrosis [Unknown]
  - Pulmonary mass [Unknown]
  - Illness [Unknown]
